FAERS Safety Report 7325169-0 (Version None)
Quarter: 2011Q1

REPORT INFORMATION
  Report Type: 
  Country: None (occurrence: None)
  Receive Date: 20110302
  Receipt Date: 20110222
  Transmission Date: 20110831
  Serious: Yes (Hospitalization)
  Sender: FDA-Public Use
  Company Number: US-ASTELLAS-2011US000753

PATIENT

DRUGS (3)
  1. BACTRIM [Concomitant]
     Indication: INFECTION
     Dosage: UNK
     Route: 048
     Dates: start: 19980626
  2. PRILOSEC [Concomitant]
     Indication: GASTROOESOPHAGEAL REFLUX DISEASE
     Dosage: 25 MG, BID
     Route: 048
     Dates: start: 19980626
  3. PROGRAF [Suspect]
     Indication: RENAL TRANSPLANT
     Dosage: 2 MG, BID
     Route: 048
     Dates: start: 19980626

REACTIONS (1)
  - UTERINE LEIOMYOMA [None]
